FAERS Safety Report 4592462-4 (Version None)
Quarter: 2005Q1

REPORT INFORMATION
  Report Type: 
  Country: None (occurrence: None)
  Receive Date: 20050222
  Receipt Date: 20050209
  Transmission Date: 20050727
  Serious: Yes (Hospitalization)
  Sender: FDA-Public Use
  Company Number: AZAUS200500053

PATIENT
  Age: 61 Year
  Sex: Male
  Weight: 87.5442 kg

DRUGS (4)
  1. VIDAZA [Suspect]
     Indication: MYELODYSPLASTIC SYNDROME
     Dosage: 75 MG/M2 (150 MG), SUBCUTANEOUS
     Route: 058
     Dates: start: 20050131, end: 20050206
  2. EMEND [Concomitant]
  3. DECADRON [Concomitant]
  4. KYTRIL [Concomitant]

REACTIONS (2)
  - BACTERIAL SEPSIS [None]
  - HYPERGLYCAEMIA [None]
